FAERS Safety Report 4831379-4 (Version None)
Quarter: 2005Q4

REPORT INFORMATION
  Report Type: 
  Country: None (occurrence: None)
  Receive Date: 20051118
  Receipt Date: 20040107
  Transmission Date: 20060501
  Serious: Yes (Hospitalization)
  Sender: FDA-Public Use
  Company Number: ES-GLAXOSMITHKLINE-B0319105A

PATIENT
  Sex: Female

DRUGS (1)
  1. BUPROPION HYDROCHLORIDE [Suspect]

REACTIONS (5)
  - MALAISE [None]
  - PAIN [None]
  - PYREXIA [None]
  - SERUM SICKNESS [None]
  - SKIN INJURY [None]
